FAERS Safety Report 19261813 (Version 1)
Quarter: 2021Q2

REPORT INFORMATION
  Report Type: Spontaneous
  Country: CN (occurrence: CN)
  Receive Date: 20210515
  Receipt Date: 20210515
  Transmission Date: 20210717
  Serious: Yes (Death, Hospitalization)
  Sender: FDA-Public Use
  Company Number: CN-JNJFOC-20210508948

PATIENT
  Age: 22 Year
  Sex: Male

DRUGS (1)
  1. TYLENOL ER 650MG TABLET [Suspect]
     Active Substance: ACETAMINOPHEN
     Indication: PYREXIA
     Dosage: 12 TABLETS (7.8 G TOTAL) WITHIN 2 DAYS
     Route: 048

REACTIONS (5)
  - Haemophagocytic lymphohistiocytosis [Fatal]
  - Overdose [Fatal]
  - Multiple organ dysfunction syndrome [Fatal]
  - Haemorrhage [Fatal]
  - Acute hepatic failure [Fatal]
